FAERS Safety Report 9492404 (Version 3)
Quarter: 2013Q3

REPORT INFORMATION
  Report Type: Spontaneous
  Country: US (occurrence: US)
  Receive Date: 20130830
  Receipt Date: 20130924
  Transmission Date: 20140515
  Serious: Yes (Hospitalization)
  Sender: FDA-Public Use
  Company Number: US-TEVA-429073USA

PATIENT
  Age: 47 Year
  Sex: Female
  Weight: 58.11 kg

DRUGS (8)
  1. FENTORA [Suspect]
     Route: 002
  2. ACTIQ [Suspect]
     Route: 048
     Dates: start: 201307
  3. FENTANYL [Concomitant]
     Indication: PAIN
     Dosage: 37.5 MICROGRAM DAILY;
  4. PRILOSEC [Concomitant]
     Indication: GASTROINTESTINAL DISORDER
  5. WELLBUTRIN [Concomitant]
  6. HYDROCHLOROTHIAZIDE [Concomitant]
  7. SEROQUEL [Concomitant]
     Dosage: AT BEDTIME
  8. ZOFRAN [Concomitant]
     Dosage: 16 MILLIGRAM DAILY;

REACTIONS (6)
  - Electrolyte imbalance [Unknown]
  - Malaise [Not Recovered/Not Resolved]
  - Pain [Recovered/Resolved]
  - Nausea [Not Recovered/Not Resolved]
  - Product quality issue [Unknown]
  - Adverse event [Unknown]
